FAERS Safety Report 6830241-5 (Version None)
Quarter: 2010Q3

REPORT INFORMATION
  Report Type: 
  Country: None (occurrence: None)
  Receive Date: 20100712
  Receipt Date: 20100706
  Transmission Date: 20110219
  Serious: Yes (Hospitalization)
  Sender: FDA-Public Use
  Company Number: US-BIOGENIDEC-2010BI010775

PATIENT
  Age: 25 Year
  Sex: Female
  Weight: 63 kg

DRUGS (6)
  1. TYSABRI [Suspect]
     Indication: MULTIPLE SCLEROSIS
     Route: 042
     Dates: start: 20070117, end: 20100401
  2. TRILEPTAL [Concomitant]
  3. NEURONTIN [Concomitant]
     Dates: start: 20100501
  4. SEASONALE [Concomitant]
     Indication: CONTRACEPTION
     Dates: start: 20030101
  5. VITAMIN D [Concomitant]
     Indication: SUPPLEMENTATION THERAPY
     Dates: start: 20090101
  6. MULTI-VITAMIN [Concomitant]
     Indication: SUPPLEMENTATION THERAPY
     Dates: start: 20080101

REACTIONS (9)
  - ACUTE FEBRILE NEUTROPHILIC DERMATOSIS [None]
  - ANXIETY [None]
  - BURNING SENSATION [None]
  - DEPRESSION [None]
  - DRUG HYPERSENSITIVITY [None]
  - HYPERSENSITIVITY [None]
  - INSOMNIA [None]
  - NEURALGIA [None]
  - TREMOR [None]
